FAERS Safety Report 7564317-4 (Version None)
Quarter: 2011Q2

REPORT INFORMATION
  Report Type: 
  Country: None (occurrence: None)
  Receive Date: 20110622
  Receipt Date: 20110609
  Transmission Date: 20111010
  Serious: Yes (Other)
  Sender: FDA-Public Use
  Company Number: PHHY2011FR50614

PATIENT
  Sex: Male

DRUGS (2)
  1. TEGRETOL [Suspect]
     Indication: MENTAL DISORDER
     Dosage: UNK UKN, UNK
     Dates: start: 20020501
  2. ANESTHETICS NOS [Concomitant]
     Dosage: UNK UKN, UNK

REACTIONS (4)
  - TREMOR [None]
  - MUSCULOSKELETAL STIFFNESS [None]
  - PARKINSONISM [None]
  - AKINESIA [None]
